FAERS Safety Report 8340704-1 (Version None)
Quarter: 2012Q2

REPORT INFORMATION
  Report Type: 
  Country: None (occurrence: None)
  Receive Date: 20120507
  Receipt Date: 20120425
  Transmission Date: 20120825
  Serious: Yes (Hospitalization)
  Sender: FDA-Public Use
  Company Number: US-BIOGENIDEC-2012BI011844

PATIENT
  Age: 59 Year
  Sex: Female

DRUGS (2)
  1. RECLAST [Concomitant]
  2. TYSABRI [Suspect]
     Indication: MULTIPLE SCLEROSIS
     Route: 042
     Dates: start: 20070130

REACTIONS (2)
  - HIP FRACTURE [None]
  - DUPUYTREN'S CONTRACTURE [None]
